FAERS Safety Report 10459484 (Version 2)
Quarter: 2014Q3

REPORT INFORMATION
  Report Type: Report from Study
  Country: CA (occurrence: CA)
  Receive Date: 20140917
  Receipt Date: 20140917
  Transmission Date: 20150326
  Serious: Yes (Hospitalization)
  Sender: FDA-Public Use
  Company Number: PHHO2011CA15485

PATIENT
  Age: 59 Year
  Sex: Male
  Weight: 79.7 kg

DRUGS (6)
  1. CALCIUM [Concomitant]
     Active Substance: CALCIUM
     Indication: PROPHYLAXIS
     Dosage: 250 MG, UNK
     Dates: start: 2005
  2. SOM230 [Suspect]
     Active Substance: PASIREOTIDE
     Dosage: EXTENSION BLINDED PHASE
     Route: 030
     Dates: start: 20100527
  3. SOM230 [Suspect]
     Active Substance: PASIREOTIDE
     Indication: ACROMEGALY
     Dosage: EXTENSION OPEN LABEL PHASE
  4. SOM230 [Suspect]
     Active Substance: PASIREOTIDE
     Indication: ACROMEGALY
     Dosage: CORE PHASE
     Route: 030
     Dates: start: 20090625
  5. ADVIL [Concomitant]
     Active Substance: IBUPROFEN
     Indication: OSTEOARTHRITIS
     Dosage: 200 MG, PRN
     Dates: start: 20091229
  6. MOTRIN [Concomitant]
     Active Substance: IBUPROFEN
     Indication: ARTHRALGIA
     Dosage: 200 MG, PRN
     Dates: start: 20110315

REACTIONS (1)
  - Cholecystitis [Recovered/Resolved]

NARRATIVE: CASE EVENT DATE: 20110907
